FAERS Safety Report 4885617-2 (Version None)
Quarter: 2005Q4

REPORT INFORMATION
  Report Type: 
  Country: None (occurrence: None)
  Receive Date: 20051220
  Receipt Date: 20050408
  Transmission Date: 20060501
  Serious: Yes (Other)
  Sender: FDA-Public Use
  Company Number: HQWYE012113APR05

PATIENT
  Age: 66 Year
  Sex: Female
  Weight: 47.22 kg

DRUGS (4)
  1. EFFEXOR XR [Suspect]
     Indication: DEPRESSION
     Dosage: SEE IMAGE
     Route: 048
     Dates: start: 20050101, end: 20050201
  2. EFFEXOR XR [Suspect]
     Indication: DEPRESSION
     Dosage: SEE IMAGE
     Route: 048
     Dates: start: 20050201, end: 20050406
  3. STALEVO (CARBIDOPA/ENTACAPONE/LEVODOPA) [Concomitant]
  4. KLONOPIN [Concomitant]

REACTIONS (5)
  - CONCOMITANT DISEASE PROGRESSION [None]
  - DRY MOUTH [None]
  - DYSPHAGIA [None]
  - NAUSEA [None]
  - PARKINSON'S DISEASE [None]
